FAERS Safety Report 7353515 (Version 2)
Quarter: 2016Q4

REPORT INFORMATION
  Report Type: Report from Study
  Country: US (occurrence: US)
  Receive Date: 20100413
  Receipt Date: 20161010
  Transmission Date: 20170207
  Serious: Yes (Hospitalization, Other)
  Sender: FDA-Public Use
  Company Number: US-ROCHE-696367

PATIENT
  Age: 70 Year
  Sex: Female
  Weight: 58 kg

DRUGS (5)
  1. VELIPARIB [Suspect]
     Active Substance: VELIPARIB
     Indication: OVARIAN EPITHELIAL CANCER
     Dosage: FREQ: BID ON DAYS 1-21.?LAST TREATMENT RECEIVED ON 23/DEC/2009. ?DOSE 1260 MG
     Route: 048
  2. BEVACIZUMAB [Suspect]
     Active Substance: BEVACIZUMAB
     Indication: OVARIAN EPITHELIAL CANCER
     Dosage: FREQUENCY:30-90 MINUTES ON DAY ONE.?LAST TREATMENT RECEIVED ON 23/DEC/2009.
     Route: 042
  3. VELIPARIB [Suspect]
     Active Substance: VELIPARIB
     Route: 048
  4. CARBOPLATIN. [Suspect]
     Active Substance: CARBOPLATIN
     Indication: OVARIAN EPITHELIAL CANCER
     Dosage: AUC=6 FREQ; 30 MIN ON DAY DAY ONE.
     Route: 042
  5. PACLITAXEL. [Suspect]
     Active Substance: PACLITAXEL
     Indication: OVARIAN EPITHELIAL CANCER
     Dosage: FREQ: OVER 3 HOURS ON DAY ONE.
     Route: 042

REACTIONS (13)
  - Diverticular perforation [Unknown]
  - Joint range of motion decreased [Unknown]
  - Embolism [Unknown]
  - Hypokalaemia [Unknown]
  - Anaemia [Unknown]
  - Soft tissue necrosis [Unknown]
  - Hypokalaemia [Unknown]
  - Pharyngeal anastomotic leak [Unknown]
  - Hypoalbuminaemia [Unknown]
  - Hypoalbuminaemia [Unknown]
  - Small intestinal perforation [Unknown]
  - Neutrophil count decreased [Unknown]
  - Pelvic infection [Unknown]

NARRATIVE: CASE EVENT DATE: 20091223
